FAERS Safety Report 7439478-8 (Version None)
Quarter: 2011Q2

REPORT INFORMATION
  Report Type: 
  Country: None (occurrence: None)
  Receive Date: 20110427
  Receipt Date: 20110418
  Transmission Date: 20111010
  Serious: Yes (Hospitalization, Other)
  Sender: FDA-Public Use
  Company Number: IT-TEVA-278053ISR

PATIENT
  Sex: Female

DRUGS (5)
  1. ACETYLSALICYLIC ACID SRT [Suspect]
     Dates: start: 20110330, end: 20110330
  2. CARBAMAZEPINE [Suspect]
     Dates: start: 20110330, end: 20110330
  3. ZOLPIDEM [Suspect]
     Dates: start: 20110330, end: 20110330
  4. GABAPENTIN [Suspect]
     Dates: start: 20110330, end: 20110330
  5. PIMOZIDE [Suspect]
     Dates: start: 20110330, end: 20110330

REACTIONS (3)
  - OVERDOSE [None]
  - COMA [None]
  - SELF INJURIOUS BEHAVIOUR [None]
